FAERS Safety Report 6191214-1 (Version None)
Quarter: 2009Q2

REPORT INFORMATION
  Report Type: 
  Country: None (occurrence: None)
  Receive Date: 20090515
  Receipt Date: 20090506
  Transmission Date: 20091009
  Serious: Yes (Hospitalization)
  Sender: FDA-Public Use
  Company Number: BE-JNJFOC-20081200835

PATIENT
  Sex: Male
  Weight: 87 kg

DRUGS (41)
  1. GOLIMUMAB [Suspect]
     Route: 058
  2. GOLIMUMAB [Suspect]
     Route: 058
  3. GOLIMUMAB [Suspect]
     Route: 058
  4. GOLIMUMAB [Suspect]
     Route: 058
  5. GOLIMUMAB [Suspect]
     Route: 058
  6. GOLIMUMAB [Suspect]
     Route: 058
  7. GOLIMUMAB [Suspect]
     Route: 058
  8. GOLIMUMAB [Suspect]
     Route: 058
  9. GOLIMUMAB [Suspect]
     Route: 058
  10. GOLIMUMAB [Suspect]
     Route: 058
  11. GOLIMUMAB [Suspect]
     Route: 058
  12. GOLIMUMAB [Suspect]
     Route: 058
  13. GOLIMUMAB [Suspect]
     Indication: RHEUMATOID ARTHRITIS
     Route: 058
  14. PLACEBO [Suspect]
     Route: 058
  15. PLACEBO [Suspect]
     Route: 058
  16. PLACEBO [Suspect]
     Route: 058
  17. PLACEBO [Suspect]
     Route: 058
  18. PLACEBO [Suspect]
     Route: 058
  19. PLACEBO [Suspect]
     Route: 058
  20. PLACEBO [Suspect]
     Route: 058
  21. PLACEBO [Suspect]
     Route: 058
  22. PLACEBO [Suspect]
     Route: 058
  23. PLACEBO [Suspect]
     Route: 058
  24. PLACEBO [Suspect]
     Route: 058
  25. PLACEBO [Suspect]
     Route: 058
  26. PLACEBO [Suspect]
     Indication: RHEUMATOID ARTHRITIS
     Route: 058
  27. METHOTREXATE [Suspect]
     Route: 048
  28. METHOTREXATE [Suspect]
     Route: 048
  29. METHOTREXATE [Suspect]
     Route: 048
  30. METHOTREXATE [Suspect]
     Route: 048
  31. METHOTREXATE [Suspect]
     Route: 048
  32. METHOTREXATE [Suspect]
     Indication: RHEUMATOID ARTHRITIS
     Route: 048
  33. ISOTEN [Concomitant]
     Route: 048
  34. DAFALGAN [Concomitant]
     Route: 048
  35. METHOTREXATE [Concomitant]
     Route: 048
  36. DOCOMEPRA [Concomitant]
     Route: 048
  37. ZOCOR [Concomitant]
     Route: 048
  38. CARDIOASPIRINE [Concomitant]
     Route: 048
  39. FOLIC ACID [Concomitant]
     Route: 048
  40. PREDNISOLONE [Concomitant]
     Route: 048
  41. IBUPROFEN [Concomitant]
     Route: 048

REACTIONS (1)
  - ADENOCARCINOMA [None]
